FAERS Safety Report 6563008-6 (Version None)
Quarter: 2010Q1

REPORT INFORMATION
  Report Type: 
  Country: None (occurrence: None)
  Receive Date: 20100130
  Receipt Date: 20091201
  Transmission Date: 20100710
  Serious: No
  Sender: FDA-Public Use
  Company Number: US-ABBOTT-09P-163-0611633-00

PATIENT
  Sex: Female
  Weight: 59.02 kg

DRUGS (4)
  1. HUMIRA [Suspect]
     Indication: CROHN'S DISEASE
     Dosage: DAY 1
     Dates: start: 20091130, end: 20091130
  2. HUMIRA [Suspect]
     Dosage: DAY 15
     Dates: start: 20091201, end: 20091201
  3. HUMIRA [Suspect]
     Dosage: DAY 29
  4. TRI-SPRINTEC [Concomitant]
     Indication: CONTRACEPTION
     Route: 048

REACTIONS (3)
  - COUGH [None]
  - INJECTION SITE PAIN [None]
  - THROAT IRRITATION [None]
